FAERS Safety Report 9636737 (Version 2)
Quarter: 2013Q4

REPORT INFORMATION
  Report Type: Spontaneous
  Country: US (occurrence: US)
  Receive Date: 20131022
  Receipt Date: 20131129
  Transmission Date: 20140711
  Serious: No
  Sender: FDA-Public Use
  Company Number: US-B.I. PHARMACEUTICALS,INC./RIDGEFIELD-2013-BI-32030BP

PATIENT
  Age: 64 Year
  Sex: Female
  Weight: 74.39 kg

DRUGS (8)
  1. COMBIVENT [Suspect]
     Indication: CHRONIC OBSTRUCTIVE PULMONARY DISEASE
     Dosage: DOSE PER APPLICATION: 20 MCG / 100 MCG; DAILY DOSE: 80 MCG/ 400 MG
     Route: 055
     Dates: start: 201201
  2. TRIAMTERENE [Concomitant]
     Indication: HYPERTENSION
     Dosage: 75/50
  3. ASA [Concomitant]
     Indication: CORONARY ARTERY DISEASE
  4. TOPROL XL [Concomitant]
     Indication: HYPERTENSION
  5. SYNTHROID [Concomitant]
     Dosage: 50 MEQ
  6. PREDNISONE [Concomitant]
     Dosage: 5 MG
  7. METHOTREXATE [Concomitant]
     Indication: RHEUMATOID ARTHRITIS
  8. REMICADE [Concomitant]
     Indication: RHEUMATOID ARTHRITIS

REACTIONS (1)
  - Cataract [Recovered/Resolved]
